FAERS Safety Report 10255936 (Version 1)
Quarter: 2014Q2

REPORT INFORMATION
  Report Type: Spontaneous
  Country: AU (occurrence: AU)
  Receive Date: 20140624
  Receipt Date: 20140624
  Transmission Date: 20141212
  Serious: Yes (Hospitalization, Other)
  Sender: FDA-Public Use
  Company Number: AU-JNJFOC-20140612825

PATIENT
  Age: 39 Year
  Sex: Female

DRUGS (1)
  1. REMICADE [Suspect]
     Indication: PYODERMA GANGRENOSUM
     Route: 042

REACTIONS (12)
  - Spinal fracture [Unknown]
  - Pyoderma gangrenosum [Unknown]
  - Lower limb fracture [Unknown]
  - Escherichia bacteraemia [Unknown]
  - Bronchopulmonary aspergillosis [Unknown]
  - Thyroid function test abnormal [Unknown]
  - Premature menopause [Unknown]
  - Blood glucose abnormal [Unknown]
  - Galactorrhoea [Unknown]
  - Pyrexia [Unknown]
  - Off label use [Unknown]
  - Drug ineffective [Unknown]
